FAERS Safety Report 9260605 (Version 1)
Quarter: 2013Q2

REPORT INFORMATION
  Report Type: Spontaneous
  Country: FR (occurrence: FR)
  Receive Date: 20130429
  Receipt Date: 20130429
  Transmission Date: 20140414
  Serious: Yes (Life-Threatening, Hospitalization)
  Sender: FDA-Public Use
  Company Number: FR-BRISTOL-MYERS SQUIBB COMPANY-18807677

PATIENT
  Age: 34 Year
  Sex: Female

DRUGS (5)
  1. ABILIFY [Suspect]
     Route: 048
  2. CYPROTERONE + ETHINYLESTRADIOL [Suspect]
     Indication: ORAL CONTRACEPTION
     Route: 048
     Dates: end: 20130308
  3. ZYPREXA [Suspect]
     Route: 048
     Dates: end: 20130311
  4. SEROPLEX [Concomitant]
  5. XANAX [Concomitant]

REACTIONS (2)
  - Pulmonary embolism [Recovering/Resolving]
  - Blood triglycerides increased [None]
